FAERS Safety Report 7098497-4 (Version None)
Quarter: 2010Q4

REPORT INFORMATION
  Report Type: 
  Country: None (occurrence: None)
  Receive Date: 20101112
  Receipt Date: 20101105
  Transmission Date: 20110411
  Serious: Yes (Death, Hospitalization)
  Sender: FDA-Public Use
  Company Number: DE-ELI_LILLY_AND_COMPANY-10-11-00123

PATIENT
  Sex: Male
  Weight: 66 kg

DRUGS (5)
  1. PEMETREXED [Suspect]
     Indication: NON-SMALL CELL LUNG CANCER
     Dosage: 880 MG, UNK
     Route: 042
     Dates: start: 20100531
  2. CISPLATIN [Suspect]
     Indication: NON-SMALL CELL LUNG CANCER
     Dosage: 130 MG, UNK
     Route: 042
     Dates: start: 20100531
  3. FOLIC ACID [Concomitant]
     Dosage: 0.4 D/F, UNK
  4. PEPSIN [Concomitant]
     Dosage: 0.03 D/F, UNK
  5. MACROGOL [Concomitant]

REACTIONS (2)
  - DYSPHAGIA [None]
  - LEUKOPENIA [None]
